FAERS Safety Report 10678290 (Version 1)
Quarter: 2014Q4

REPORT INFORMATION
  Report Type: Spontaneous
  Country: JP (occurrence: None)
  Receive Date: 20141223
  Receipt Date: 20141223
  Transmission Date: 20150529
  Serious: Yes (Hospitalization)
  Sender: FDA-Public Use
  Company Number: INT_00572_2014

PATIENT
  Age: 66 Year
  Sex: Female

DRUGS (3)
  1. DEXAMETHAZONE [Concomitant]
     Active Substance: DEXAMETHASONE
  2. CISPLATIN (CISPLATIN) (HQ SPECIALTY) [Suspect]
     Active Substance: CISPLATIN
     Indication: GASTRIC CANCER
  3. TS-1 [Suspect]
     Active Substance: GIMERACIL\OTERACIL\TEGAFUR
     Indication: GASTRIC CANCER
     Route: 048

REACTIONS (3)
  - Decreased appetite [None]
  - Vomiting [None]
  - Aortic thrombosis [None]
